FAERS Safety Report 8515232-0 (Version None)
Quarter: 2012Q3

REPORT INFORMATION
  Report Type: 
  Country: None (occurrence: None)
  Receive Date: 20120717
  Receipt Date: 20120702
  Transmission Date: 20120928
  Serious: Yes (Hospitalization)
  Sender: FDA-Public Use
  Company Number: BR-ARROW-2012-12088

PATIENT
  Age: 18 Year
  Sex: Male

DRUGS (3)
  1. AMLODIPINE [Suspect]
     Indication: PRODUCT USED FOR UNKNOWN INDICATION
     Dosage: 30 OF 5 MG TABS
     Route: 048
  2. HYDROCHLOROTHIAZIDE [Suspect]
     Indication: PRODUCT USED FOR UNKNOWN INDICATION
     Dosage: 12 OF 25 MG TABS
     Route: 048
  3. FLUNARIZINE [Suspect]
     Indication: PRODUCT USED FOR UNKNOWN INDICATION
     Dosage: 25 OF 10 MG TABS
     Route: 048

REACTIONS (20)
  - SUICIDE ATTEMPT [None]
  - PULMONARY OEDEMA [None]
  - ACUTE PULMONARY OEDEMA [None]
  - POOR PERIPHERAL CIRCULATION [None]
  - DIZZINESS [None]
  - PARAESTHESIA [None]
  - ARRHYTHMIA SUPRAVENTRICULAR [None]
  - ATRIOVENTRICULAR BLOCK [None]
  - BUNDLE BRANCH BLOCK LEFT [None]
  - ARRHYTHMIA [None]
  - VERTIGO [None]
  - ELECTROCARDIOGRAM PR PROLONGATION [None]
  - ANURIA [None]
  - HEADACHE [None]
  - HYPOTENSION [None]
  - ELECTROCARDIOGRAM ST SEGMENT DEPRESSION [None]
  - OVERDOSE [None]
  - TOXICITY TO VARIOUS AGENTS [None]
  - HYPERGLYCAEMIA [None]
  - EXTRASYSTOLES [None]
